FAERS Safety Report 9850225 (Version 1)
Quarter: 2014Q1

REPORT INFORMATION
  Report Type: Spontaneous
  Country: US (occurrence: None)
  Receive Date: 20140127
  Receipt Date: 20140127
  Transmission Date: 20141002
  Serious: Yes (Death)
  Sender: FDA-Public Use
  Company Number: None

PATIENT
  Age: 69 Year
  Sex: Male
  Weight: 122.02 kg

DRUGS (1)
  1. ENOXAPARIN SODIUM [Suspect]
     Indication: COLONOSCOPY
     Route: 058
     Dates: start: 20140108, end: 20140120

REACTIONS (3)
  - Anaemia [None]
  - Intra-abdominal haematoma [None]
  - Cardiac arrest [None]
